FAERS Safety Report 9694514 (Version 1)
Quarter: 2013Q4

REPORT INFORMATION
  Report Type: Spontaneous
  Country: US (occurrence: US)
  Receive Date: 20131118
  Receipt Date: 20131118
  Transmission Date: 20140711
  Serious: Yes (Hospitalization, Other)
  Sender: FDA-Public Use
  Company Number: US-RB-060600-13

PATIENT
  Sex: Female

DRUGS (3)
  1. SUBUTEX [Suspect]
     Indication: DRUG DEPENDENCE
     Route: 060
     Dates: start: 2006
  2. BUPRENORPHINE GENERIC [Suspect]
     Indication: DRUG DEPENDENCE
     Route: 060
     Dates: end: 2013
  3. BUPRENORPHINE GENERIC [Suspect]
     Dosage: SELF TAPERED TO 8-16 MG DAILY AND CONTINUED 8-16 WITH PHYSICIAN^S ORDER
     Route: 060
     Dates: start: 2013

REACTIONS (4)
  - Carotid artery occlusion [Recovered/Resolved]
  - Procedural pain [Recovered/Resolved]
  - Therapeutic product ineffective [Recovered/Resolved]
  - Intentional underdose [Recovered/Resolved]
